FAERS Safety Report 8318062-8 (Version None)
Quarter: 2012Q2

REPORT INFORMATION
  Report Type: 
  Country: None (occurrence: None)
  Receive Date: 20120427
  Receipt Date: 20120426
  Transmission Date: 20120825
  Serious: Yes (Other)
  Sender: FDA-Public Use
  Company Number: CN-ROCHE-1060338

PATIENT

DRUGS (1)
  1. HERCEPTIN [Suspect]
     Indication: BREAST CANCER
     Route: 041
     Dates: start: 20110501

REACTIONS (6)
  - ASTHENIA [None]
  - PALPITATIONS [None]
  - CHEST DISCOMFORT [None]
  - SINUS TACHYCARDIA [None]
  - PYREXIA [None]
  - HYPERHIDROSIS [None]
